FAERS Safety Report 5691477-2 (Version None)
Quarter: 2008Q1

REPORT INFORMATION
  Report Type: 
  Country: None (occurrence: None)
  Receive Date: 20080331
  Receipt Date: 20080319
  Transmission Date: 20080703
  Serious: Yes (Other)
  Sender: FDA-Public Use
  Company Number: 2008AP000703

PATIENT
  Age: 50 Year
  Sex: Female
  Weight: 121.564 kg

DRUGS (20)
  1. ZOLPIDEM [Suspect]
     Indication: INSOMNIA
     Dosage: 10 MG; HS; PO
     Route: 048
     Dates: start: 20070816
  2. ZOLPIDEM [Suspect]
     Indication: SLEEP DISORDER
     Dosage: 10 MG; HS; PO
     Route: 048
     Dates: start: 20070816
  3. DIGOXIN [Concomitant]
  4. LEVOTHYROXINE SODIUM [Concomitant]
  5. FUROSEMIDE [Concomitant]
  6. ESCITALOPRAM OXALATE [Concomitant]
  7. TOLTERODINE TARTRATE [Concomitant]
  8. METFORMIN HYDROCHLORIDE [Concomitant]
  9. MONTELUKAST SODIUM [Concomitant]
  10. FOLIC ACID [Concomitant]
  11. DIPYRIDAMOLE [Concomitant]
  12. OMEPRAZOLE [Concomitant]
  13. POTASSIUM CHLORIDE [Concomitant]
  14. GABAPENTIN [Concomitant]
  15. HYDROCODONE BITARTRATE [Concomitant]
  16. IBUPROFEN [Concomitant]
  17. NOVOLIN 70/30 [Concomitant]
  18. INSULIN GLARGINE [Concomitant]
  19. ACETAMINOPHEN [Concomitant]
  20. ZOLPIDEM TARTRATE [Concomitant]

REACTIONS (3)
  - ACTIVITIES OF DAILY LIVING IMPAIRED [None]
  - ASTHENIA [None]
  - FATIGUE [None]
